FAERS Safety Report 14213335 (Version 2)
Quarter: 2017Q4

REPORT INFORMATION
  Report Type: Spontaneous
  Country: US (occurrence: US)
  Receive Date: 20171122
  Receipt Date: 20171210
  Transmission Date: 20180321
  Serious: No
  Sender: FDA-Public Use
  Company Number: US-ELI_LILLY_AND_COMPANY-US201711005771

PATIENT
  Age: 79 Year
  Sex: Female

DRUGS (10)
  1. GLIPIZIDE. [Concomitant]
     Active Substance: GLIPIZIDE
     Indication: DIABETES MELLITUS
     Dosage: 2 MG, UNK
  2. HUMALOG [Suspect]
     Active Substance: INSULIN LISPRO
     Indication: PRODUCT USED FOR UNKNOWN INDICATION
     Dosage: 6 U, EACH MORNING
     Route: 065
     Dates: start: 20171024, end: 20171026
  3. HUMALOG [Suspect]
     Active Substance: INSULIN LISPRO
     Dosage: 6 U, EACH MORNING
     Route: 065
     Dates: end: 20171108
  4. HUMALOG [Suspect]
     Active Substance: INSULIN LISPRO
     Dosage: 7 U, DAILY (LUNCH)
     Route: 065
     Dates: end: 20171108
  5. BYETTA [Suspect]
     Active Substance: EXENATIDE
     Dosage: UNK
     Route: 065
  6. BYETTA [Suspect]
     Active Substance: EXENATIDE
     Indication: PRODUCT USED FOR UNKNOWN INDICATION
     Dosage: UNK UNK, UNKNOWN
     Route: 065
     Dates: start: 20171026, end: 20171030
  7. HUMALOG [Suspect]
     Active Substance: INSULIN LISPRO
     Dosage: 4 UNK, DAILY (SUPPER)
     Route: 065
     Dates: start: 20171024, end: 20171026
  8. LEVEMIR [Suspect]
     Active Substance: INSULIN DETEMIR
     Indication: PRODUCT USED FOR UNKNOWN INDICATION
     Dosage: UNK UNK, UNKNOWN
     Route: 065
  9. HUMALOG [Suspect]
     Active Substance: INSULIN LISPRO
     Dosage: 4 U, DAILY (SUPPER)
     Route: 065
     Dates: end: 20171108
  10. HUMALOG [Suspect]
     Active Substance: INSULIN LISPRO
     Dosage: 7 UNK, DAILY (LUNCH)
     Route: 065
     Dates: start: 20171024, end: 20171026

REACTIONS (11)
  - Feeling abnormal [Unknown]
  - Hypoaesthesia oral [Recovered/Resolved]
  - Paraesthesia oral [Recovered/Resolved]
  - Weight decreased [Unknown]
  - Burning sensation [Unknown]
  - Chest discomfort [Recovered/Resolved]
  - Nausea [Unknown]
  - Malaise [Unknown]
  - Dysphonia [Recovered/Resolved]
  - Vomiting [Unknown]
  - Drug hypersensitivity [Recovered/Resolved]

NARRATIVE: CASE EVENT DATE: 201710
